FAERS Safety Report 7846393-4 (Version None)
Quarter: 2011Q4

REPORT INFORMATION
  Report Type: 
  Country: None (occurrence: None)
  Receive Date: 20111025
  Receipt Date: 20111025
  Transmission Date: 20120403
  Serious: No
  Sender: FDA-Public Use
  Company Number: None

PATIENT
  Age: 44 Year
  Sex: Female
  Weight: 58.967 kg

DRUGS (1)
  1. METROGEL [Suspect]
     Indication: ROSACEA
     Dosage: 1%
     Route: 061

REACTIONS (2)
  - NAUSEA [None]
  - HEADACHE [None]
